FAERS Safety Report 10064455 (Version 1)
Quarter: 2014Q2

REPORT INFORMATION
  Report Type: Spontaneous
  Country: US (occurrence: None)
  Receive Date: 20140407
  Receipt Date: 20140407
  Transmission Date: 20141212
  Serious: Yes (Hospitalization)
  Sender: FDA-Public Use
  Company Number: None

PATIENT
  Age: 86 Year
  Sex: Female
  Weight: 62.1 kg

DRUGS (2)
  1. CARBOPLATIN [Suspect]
  2. PACLITAXEL [Suspect]

REACTIONS (3)
  - Abdominal pain [None]
  - Vomiting [None]
  - Intestinal dilatation [None]
